FAERS Safety Report 18703372 (Version 1)
Quarter: 2021Q1

REPORT INFORMATION
  Report Type: Spontaneous
  Country: US (occurrence: US)
  Receive Date: 20210105
  Receipt Date: 20210105
  Transmission Date: 20210419
  Serious: No
  Sender: FDA-Public Use
  Company Number: US-TEVA-2020-US-1864652

PATIENT
  Age: 58 Year
  Sex: Female

DRUGS (2)
  1. CLONAZEPAM TEVA [Suspect]
     Active Substance: CLONAZEPAM
     Indication: PANIC ATTACK
     Route: 065
     Dates: end: 20201227
  2. CLONAZEPAM TEVA [Suspect]
     Active Substance: CLONAZEPAM
     Indication: ANXIETY

REACTIONS (13)
  - Headache [Unknown]
  - Hypertension [Unknown]
  - Depression [Unknown]
  - Dry mouth [Unknown]
  - Product use complaint [Unknown]
  - Drug ineffective [Unknown]
  - Agitation [Unknown]
  - Inappropriate schedule of product administration [Unknown]
  - Insomnia [Unknown]
  - Wrong technique in product usage process [Unknown]
  - Tremor [Unknown]
  - Disturbance in attention [Unknown]
  - General physical health deterioration [Not Recovered/Not Resolved]
